FAERS Safety Report 6232472-4 (Version None)
Quarter: 2009Q2

REPORT INFORMATION
  Report Type: 
  Country: None (occurrence: None)
  Receive Date: 20090617
  Receipt Date: 20090605
  Transmission Date: 20091009
  Serious: Yes (Other)
  Sender: FDA-Public Use
  Company Number: MX-ROCHE-634289

PATIENT
  Sex: Female
  Weight: 76 kg

DRUGS (5)
  1. PEG-INTERFERON ALFA 2A (RO 25-8310) [Suspect]
     Indication: ANTIVIRAL TREATMENT
     Dosage: REPORTED DOSE: 135 MCG.
     Route: 058
     Dates: start: 20080530
  2. PEG-INTERFERON ALFA 2A (RO 25-8310) [Suspect]
     Dosage: DOSE WAS LOWERED IN RESPONSE TO THE EVENT.
     Route: 058
     Dates: end: 20090403
  3. PARACETAMOL [Concomitant]
     Indication: ANTIINFLAMMATORY THERAPY
     Dosage: REPORTED FREQ.: /8 HR
     Dates: start: 20080530
  4. ESOMEPRAZOLE MAGNESIUM [Concomitant]
     Dosage: REPORTED FREQ.: /12 HR
     Dates: start: 20080530
  5. NIMESULIDE [Concomitant]
     Indication: ANTIINFLAMMATORY THERAPY
     Dosage: REPORTED FREQ.: /8 HR
     Dates: start: 20080530

REACTIONS (1)
  - UTERINE DISORDER [None]
